FAERS Safety Report 14270304 (Version 1)
Quarter: 2017Q4

REPORT INFORMATION
  Report Type: Spontaneous
  Country: DK (occurrence: DK)
  Receive Date: 20171211
  Receipt Date: 20171211
  Transmission Date: 20180321
  Serious: Yes (Other)
  Sender: FDA-Public Use
  Company Number: DK-OTSUKA-2016_020938

PATIENT
  Sex: Male

DRUGS (19)
  1. IMOCLONE [Suspect]
     Active Substance: ZOPICLONE
     Indication: INSOMNIA
     Dosage: 7.5 MG, UNK
     Route: 048
     Dates: start: 20120611
  2. CIPRALEX [Suspect]
     Active Substance: ESCITALOPRAM OXALATE
     Indication: DEPRESSION
     Dosage: 10 MG, UNK
     Route: 048
     Dates: start: 20120611, end: 201208
  3. RISPERIDON [Suspect]
     Active Substance: RISPERIDONE
     Dosage: 1 MG, UNK
     Route: 048
  4. ZOPICLONE [Suspect]
     Active Substance: ZOPICLONE
     Indication: INSOMNIA
     Dosage: 7.5 MG, UNK
     Route: 048
     Dates: start: 20120611
  5. RISPERIDONE. [Suspect]
     Active Substance: RISPERIDONE
     Indication: SCHIZOPHRENIA
     Dosage: UNK, 1/2 MG AT NIGHT
     Route: 048
     Dates: start: 20150115
  6. SOLIAN [Suspect]
     Active Substance: AMISULPRIDE
     Dosage: 50 MG, UNK
     Route: 065
     Dates: start: 20150428
  7. OXAPAX [Suspect]
     Active Substance: OXAZEPAM
     Indication: SEDATION
     Dosage: UNK
     Route: 048
     Dates: start: 20120629
  8. SOLIAN [Suspect]
     Active Substance: AMISULPRIDE
     Indication: SCHIZOPHRENIA
     Dosage: 1 DF, UNK
     Route: 048
     Dates: start: 20121121
  9. RISPERIDON [Suspect]
     Active Substance: RISPERIDONE
     Indication: SCHIZOPHRENIA
     Dosage: UNK, 1/2 MG AT NIGHT
     Route: 048
     Dates: start: 20150115
  10. QUETIAPINE. [Suspect]
     Active Substance: QUETIAPINE
     Dosage: 300 MG, UNK
     Route: 065
     Dates: start: 20120629
  11. RISPERIDONE. [Suspect]
     Active Substance: RISPERIDONE
     Dosage: 1 MG, UNK
     Route: 048
  12. SEROQUEL [Suspect]
     Active Substance: QUETIAPINE FUMARATE
     Indication: SCHIZOPHRENIA
     Dosage: 100 MG, UNK
     Route: 048
     Dates: start: 20120625, end: 20120822
  13. SEROQUEL [Suspect]
     Active Substance: QUETIAPINE FUMARATE
     Dosage: 300 MG, UNK
     Route: 065
     Dates: start: 20120629
  14. SEROQUEL XR [Suspect]
     Active Substance: QUETIAPINE FUMARATE
     Indication: SCHIZOPHRENIA
     Dosage: 200 MG, UNK
     Route: 048
     Dates: start: 20120822
  15. ESCITALOPRAM [Suspect]
     Active Substance: ESCITALOPRAM OXALATE
     Indication: DEPRESSION
     Dosage: 10 MG, UNK
     Route: 048
     Dates: start: 20120611, end: 201208
  16. ABILIFY [Suspect]
     Active Substance: ARIPIPRAZOLE
     Indication: SCHIZOPHRENIA
     Dosage: 10 MG, UNK
     Route: 048
     Dates: start: 20120822
  17. TRUXAL [Suspect]
     Active Substance: CHLORPROTHIXENE
     Indication: SCHIZOPHRENIA
     Dosage: 265 MG, UNK
     Route: 048
     Dates: start: 20120831
  18. ZELDOX [Suspect]
     Active Substance: ZIPRASIDONE
     Indication: SCHIZOPHRENIA
     Dosage: 1 DF, UNK
     Route: 048
     Dates: start: 20120925
  19. QUETIAPINE. [Suspect]
     Active Substance: QUETIAPINE
     Indication: SCHIZOPHRENIA
     Dosage: 100 MG, UNK
     Route: 048
     Dates: start: 20120625, end: 20120822

REACTIONS (8)
  - Intentional overdose [Unknown]
  - Weight increased [Unknown]
  - Social avoidant behaviour [Unknown]
  - Suicidal ideation [Unknown]
  - Sedation [Unknown]
  - Restlessness [Unknown]
  - Suicide attempt [Unknown]
  - Depressed mood [Unknown]
